FAERS Safety Report 20176523 (Version 2)
Quarter: 2022Q1

REPORT INFORMATION
  Report Type: Spontaneous
  Country: DE (occurrence: DE)
  Receive Date: 20211213
  Receipt Date: 20220105
  Transmission Date: 20220424
  Serious: Yes (Hospitalization, Other)
  Sender: FDA-Public Use
  Company Number: None

PATIENT
  Sex: Female
  Weight: 69 kg

DRUGS (23)
  1. CITALOPRAM HYDROBROMIDE [Suspect]
     Active Substance: CITALOPRAM HYDROBROMIDE
     Indication: Depression
     Dosage: 30 MG
     Route: 048
     Dates: start: 20211119
  2. CITALOPRAM HYDROBROMIDE [Suspect]
     Active Substance: CITALOPRAM HYDROBROMIDE
     Dosage: 20 MG, QAM
     Route: 048
  3. FENTANYL [Suspect]
     Active Substance: FENTANYL
     Indication: Scoliosis
     Dosage: CHANGE 12.5 UG / H EVERY 3 DAYS (12.5 UG/H ALLE 3 TAGE WECHSELN)
     Route: 062
     Dates: start: 20211119
  4. FENTANYL [Suspect]
     Active Substance: FENTANYL
     Dosage: CHANGE 25 UG / H EVERY 3 DAYS
     Route: 062
     Dates: end: 202111
  5. MIRTAZAPINE [Suspect]
     Active Substance: MIRTAZAPINE
     Indication: Depression
     Dosage: 45 MG, QHS
     Route: 048
     Dates: start: 202111
  6. MIRTAZAPINE [Suspect]
     Active Substance: MIRTAZAPINE
     Dosage: 30 MG, QD
     Route: 048
     Dates: end: 202111
  7. QUETIAPINE [Suspect]
     Active Substance: QUETIAPINE
     Indication: Depression
     Dosage: 100 MG, QHS
     Route: 048
     Dates: end: 20211119
  8. FUROSEMIDE [Concomitant]
     Active Substance: FUROSEMIDE
     Dosage: 10 MG, QD
     Route: 065
  9. ALENDRONIC ACID [Concomitant]
     Active Substance: ALENDRONIC ACID
     Dosage: 1X A WEEK ON SATURDAYS
     Route: 065
  10. CLOPIDOGREL [Concomitant]
     Active Substance: CLOPIDOGREL BISULFATE
     Indication: Coronary artery disease
     Dosage: 37.5 MG, QD
     Route: 065
     Dates: start: 202106
  11. PANTOPRAZOLE [Concomitant]
     Active Substance: PANTOPRAZOLE
     Dosage: 20 MG, QD
     Dates: start: 202112
  12. PANTOPRAZOLE [Concomitant]
     Active Substance: PANTOPRAZOLE
     Dosage: 40 MG, QD
     Route: 065
     Dates: end: 202111
  13. ASPIRIN [Concomitant]
     Active Substance: ASPIRIN
     Dosage: 100 MG, QD
     Route: 065
  14. BRIMONIDINE [Concomitant]
     Active Substance: BRIMONIDINE TARTRATE
     Dosage: 1 GTT, Q12H
     Route: 065
  15. NITROGLYCERIN [Concomitant]
     Active Substance: NITROGLYCERIN
     Indication: Chest discomfort
     Route: 065
  16. AMLODIPINE\VALSARTAN [Concomitant]
     Active Substance: AMLODIPINE\VALSARTAN
     Dosage: 1 DF, Q12H
     Route: 065
  17. CHOLECALCIFEROL [Concomitant]
     Active Substance: CHOLECALCIFEROL
     Dosage: 1 DF, QPM
     Route: 065
  18. NEBIVOLOL [Concomitant]
     Active Substance: NEBIVOLOL
     Dosage: 1.25 MG, QD
     Route: 065
  19. TIMOLOL MALEATE\TRAVOPROST [Concomitant]
     Active Substance: TIMOLOL MALEATE\TRAVOPROST
     Dosage: 1 GTT, QD
     Route: 065
  20. ATORVASTATIN [Concomitant]
     Active Substance: ATORVASTATIN
     Dosage: 40 MG, QPM
     Route: 065
  21. BRINZO VISION [Concomitant]
     Dosage: 1 GTT, Q12H
     Route: 065
  22. IODINE [Concomitant]
     Active Substance: IODINE
     Dosage: 200 ?G, QD
     Route: 065
  23. Kalinor [Concomitant]
     Dosage: 600 MG, Q12H
     Route: 065

REACTIONS (16)
  - Blood pressure fluctuation [Recovering/Resolving]
  - Cholestasis [Recovering/Resolving]
  - Chills [Not Recovered/Not Resolved]
  - Decreased appetite [Recovering/Resolving]
  - Gait disturbance [Recovering/Resolving]
  - Cholestasis [Recovering/Resolving]
  - Weight decreased [Recovering/Resolving]
  - Feeling cold [Recovering/Resolving]
  - Hepatocellular injury [Recovering/Resolving]
  - Urinary tract infection [Recovering/Resolving]
  - General physical health deterioration [Recovering/Resolving]
  - Hypotonia [Recovering/Resolving]
  - Constipation [Recovering/Resolving]
  - Dry mouth [Recovering/Resolving]
  - Dry eye [Recovering/Resolving]
  - Night sweats [Not Recovered/Not Resolved]

NARRATIVE: CASE EVENT DATE: 20210101
